FAERS Safety Report 17008525 (Version 2)
Quarter: 2019Q4

REPORT INFORMATION
  Report Type: Spontaneous
  Country: US (occurrence: US)
  Receive Date: 20191108
  Receipt Date: 20191115
  Transmission Date: 20200122
  Serious: No
  Sender: FDA-Public Use
  Company Number: US-TEVA-2019-US-1132906

PATIENT
  Sex: Female

DRUGS (2)
  1. IVERMECTIN. [Suspect]
     Active Substance: IVERMECTIN
     Route: 065
     Dates: start: 20191023
  2. IVERMECTIN. [Suspect]
     Active Substance: IVERMECTIN
     Indication: SKIN DISORDER
     Route: 061
     Dates: start: 20191017

REACTIONS (5)
  - Disease recurrence [Unknown]
  - Skin disorder [Unknown]
  - Mass [Not Recovered/Not Resolved]
  - Nervous system disorder [Unknown]
  - Vibratory sense increased [Unknown]

NARRATIVE: CASE EVENT DATE: 20191017
